FAERS Safety Report 14343905 (Version 2)
Quarter: 2018Q1

REPORT INFORMATION
  Report Type: Report from Study
  Country: US (occurrence: US)
  Receive Date: 20180102
  Receipt Date: 20180104
  Transmission Date: 20180509
  Serious: Yes (Hospitalization)
  Sender: FDA-Public Use
  Company Number: US-ACTELION-A-NJ2017-164410

PATIENT
  Age: 78 Year
  Sex: Female
  Weight: 44.9 kg

DRUGS (3)
  1. LETAIRIS [Concomitant]
     Active Substance: AMBRISENTAN
  2. VELETRI [Suspect]
     Active Substance: EPOPROSTENOL
     Indication: PULMONARY HYPERTENSION
     Dosage: 23 NG/KG, PER MIN
     Route: 042
  3. SILDENAFIL. [Concomitant]
     Active Substance: SILDENAFIL

REACTIONS (6)
  - Device infusion issue [Unknown]
  - Stomatitis [Unknown]
  - Bronchitis [Unknown]
  - Respiratory tract congestion [Unknown]
  - Dyspnoea [Unknown]
  - Cough [Unknown]

NARRATIVE: CASE EVENT DATE: 201712
